FAERS Safety Report 11350019 (Version 1)
Quarter: 2015Q3

REPORT INFORMATION
  Report Type: Spontaneous
  Country: US (occurrence: US)
  Receive Date: 20150807
  Receipt Date: 20150807
  Transmission Date: 20151125
  Serious: Yes (Other)
  Sender: FDA-Public Use
  Company Number: US-JNJFOC-20150723362

PATIENT
  Age: 60 Year
  Sex: Female

DRUGS (1)
  1. XARELTO [Suspect]
     Active Substance: RIVAROXABAN
     Indication: PULMONARY EMBOLISM
     Route: 048

REACTIONS (6)
  - Headache [Unknown]
  - Pain in extremity [Unknown]
  - Deep vein thrombosis [Unknown]
  - Anxiety [Unknown]
  - Fatigue [Unknown]
  - Pruritus [Unknown]
